FAERS Safety Report 12389214 (Version 7)
Quarter: 2017Q3

REPORT INFORMATION
  Report Type: Report from Study
  Country: MX (occurrence: MX)
  Receive Date: 20160520
  Receipt Date: 20170803
  Transmission Date: 20171127
  Serious: Yes (Death, Life-Threatening, Hospitalization)
  Sender: FDA-Public Use
  Company Number: MX-PFIZER INC-2016261343

PATIENT
  Age: 68 Year
  Sex: Male
  Weight: 79 kg

DRUGS (4)
  1. DEXRAZOXANE. [Suspect]
     Active Substance: DEXRAZOXANE
     Indication: EPITHELIOID SARCOMA METASTATIC
     Dosage: ON A DOSAGE RATIO OF 10:1 (DEXRAZOXANE: DOXORUBICIN)
     Route: 042
     Dates: start: 20160419
  2. DOXORUBICIN HCL [Suspect]
     Active Substance: DOXORUBICIN HYDROCHLORIDE
     Indication: EPITHELIOID SARCOMA METASTATIC
     Dosage: 75 MG/M2, CYCLIC (ON DAY 1)
     Route: 042
     Dates: start: 20160419
  3. PEGFILGRASTIM [Concomitant]
     Active Substance: PEGFILGRASTIM
     Dosage: GIVEN ON DAY TWO, CYCLE ONE
  4. BLINDED THERAPY [Suspect]
     Active Substance: INVESTIGATIONAL PRODUCT
     Indication: EPITHELIOID SARCOMA METASTATIC
     Dosage: UNK, CYCLIC (ON DAY 1 AND 8)
     Route: 042
     Dates: start: 20160419, end: 20160426

REACTIONS (1)
  - Myocarditis [Recovered/Resolved with Sequelae]

NARRATIVE: CASE EVENT DATE: 20160504
